FAERS Safety Report 6672035-X (Version None)
Quarter: 2010Q2

REPORT INFORMATION
  Report Type: 
  Country: None (occurrence: None)
  Receive Date: 20100406
  Receipt Date: 20100322
  Transmission Date: 20101027
  Serious: Yes (Hospitalization, Disabling)
  Sender: FDA-Public Use
  Company Number: TUK2010A00039

PATIENT
  Age: 60 Year
  Sex: Male

DRUGS (4)
  1. ACTOPLUS MET [Suspect]
     Indication: DRUG USE FOR UNKNOWN INDICATION
     Dosage: 2 DF (1 DF,2 IN 1 D) ORAL
     Route: 048
     Dates: start: 20090227, end: 20100223
  2. RAMIPRIL [Concomitant]
  3. SIMVASTATIN [Concomitant]
  4. TAMSULOSIN HCL [Suspect]

REACTIONS (3)
  - MUSCLE NECROSIS [None]
  - RENAL FAILURE ACUTE [None]
  - RHABDOMYOLYSIS [None]
